FAERS Safety Report 4532347-2 (Version None)
Quarter: 2004Q4

REPORT INFORMATION
  Report Type: 
  Country: None (occurrence: None)
  Receive Date: 20041206
  Receipt Date: 20041025
  Transmission Date: 20050328
  Serious: No
  Sender: FDA-Public Use
  Company Number: US_0411107780

PATIENT
  Age: 50 Year
  Sex: Male
  Weight: 168 kg

DRUGS (15)
  1. CYMBALTA [Suspect]
     Indication: DEPRESSION
     Dosage: 60 MG
     Dates: start: 20041018
  2. LIPITOR [Concomitant]
  3. TOPROL-XL [Concomitant]
  4. NITRO (GLYCERYL TRINITRATE) [Concomitant]
  5. HYDROCHLOROTHIAZIDE [Concomitant]
  6. BABY ASPIRIN (ACETYSALICYLIC ACID) [Concomitant]
  7. DURAGESIC [Concomitant]
  8. CELEBREX [Concomitant]
  9. VICODIN [Concomitant]
  10. XANAX (ALPRAZOLAM DUM) [Concomitant]
  11. EFFEXOR [Concomitant]
  12. SEROQUEL [Concomitant]
  13. COLCHICINE [Concomitant]
  14. UROXATRAL [Concomitant]
  15. .. [Concomitant]

REACTIONS (12)
  - ABDOMINAL PAIN UPPER [None]
  - BACK PAIN [None]
  - CHEST PAIN [None]
  - DIARRHOEA [None]
  - DIZZINESS [None]
  - DRY MOUTH [None]
  - FEELING ABNORMAL [None]
  - NAUSEA [None]
  - PRURITUS [None]
  - SKIN INFECTION [None]
  - SUICIDAL IDEATION [None]
  - WEIGHT DECREASED [None]
